FAERS Safety Report 10177058 (Version 1)
Quarter: 2014Q2

REPORT INFORMATION
  Report Type: Spontaneous
  Country: US (occurrence: US)
  Receive Date: 20140516
  Receipt Date: 20140516
  Transmission Date: 20141212
  Serious: Yes (Other)
  Sender: FDA-Public Use
  Company Number: US-TEVA-481435USA

PATIENT
  Age: 38 Year
  Sex: Female
  Weight: 77.18 kg

DRUGS (14)
  1. COPAXONE [Suspect]
     Dosage: 20 MG/ML DAILY;
     Dates: start: 20130808
  2. AMPYRA [Suspect]
     Indication: GAIT DISTURBANCE
     Dosage: 20 MILLIGRAM DAILY;
     Route: 048
     Dates: start: 20131203
  3. FOLATE SODIUM [Concomitant]
  4. PROVIGIL [Concomitant]
  5. ZANTAC [Concomitant]
  6. LIORESAL [Concomitant]
  7. VITAMIN B12 [Concomitant]
  8. FLAXSEED OIL [Concomitant]
  9. VITAMIN D3 [Concomitant]
  10. IBUPROFEN [Concomitant]
  11. TRAMADOL HCL [Concomitant]
  12. TOPAMAX [Concomitant]
     Dates: start: 20131015
  13. NEURONTIN [Concomitant]
     Dates: start: 20120719
  14. VALIUM [Concomitant]
     Dates: start: 20131118

REACTIONS (21)
  - Multiple sclerosis relapse [Unknown]
  - Hemiparesis [Unknown]
  - Gait disturbance [Not Recovered/Not Resolved]
  - Migraine [Not Recovered/Not Resolved]
  - Paraesthesia [Not Recovered/Not Resolved]
  - Dry eye [Not Recovered/Not Resolved]
  - Fatigue [Not Recovered/Not Resolved]
  - Muscle spasticity [Not Recovered/Not Resolved]
  - Muscular weakness [Not Recovered/Not Resolved]
  - Dysgraphia [Not Recovered/Not Resolved]
  - Pancreatic disorder [Not Recovered/Not Resolved]
  - Hypoaesthesia [Not Recovered/Not Resolved]
  - Stress urinary incontinence [Not Recovered/Not Resolved]
  - Constipation [Recovering/Resolving]
  - Rhinorrhoea [Not Recovered/Not Resolved]
  - Hypokalaemia [Unknown]
  - Hypocalcaemia [Unknown]
  - Cough [Recovered/Resolved]
  - Wheezing [Not Recovered/Not Resolved]
  - Dyspnoea [Not Recovered/Not Resolved]
  - Bronchitis [Not Recovered/Not Resolved]
